FAERS Safety Report 8275295-7 (Version None)
Quarter: 2012Q2

REPORT INFORMATION
  Report Type: 
  Country: None (occurrence: None)
  Receive Date: 20120411
  Receipt Date: 20120409
  Transmission Date: 20120825
  Serious: No
  Sender: FDA-Public Use
  Company Number: US-PFIZER INC-2012089495

PATIENT
  Sex: Female
  Weight: 72.56 kg

DRUGS (2)
  1. LYRICA [Suspect]
     Indication: PAIN
     Dosage: 100 MG, 3X/DAY
     Dates: start: 20110101
  2. LAMICTAL [Concomitant]
     Indication: BIPOLAR DISORDER
     Dosage: 100 MG, 2X/DAY

REACTIONS (7)
  - VOMITING [None]
  - URTICARIA [None]
  - DIARRHOEA [None]
  - PANIC ATTACK [None]
  - HYPERHIDROSIS [None]
  - NASOPHARYNGITIS [None]
  - PAIN [None]
